FAERS Safety Report 8718789 (Version 3)
Quarter: 2012Q4

REPORT INFORMATION
  Report Type: Report from Study
  Country: US (occurrence: US)
  Receive Date: 20120810
  Receipt Date: 20121025
  Transmission Date: 20130627
  Serious: Yes (Hospitalization)
  Sender: FDA-Public Use
  Company Number: US-GILEAD-2012-0058971

PATIENT
  Age: 68 Year
  Sex: Male

DRUGS (11)
  1. RANOLAZINE [Suspect]
     Indication: ANGINA PECTORIS
     Dosage: 1000 mg, UNK
     Route: 048
     Dates: start: 20120724, end: 20120729
  2. RANOLAZINE [Suspect]
     Dosage: 500 mg, UNK
     Route: 048
     Dates: start: 20120719, end: 20120723
  3. NIFEDIPINE [Concomitant]
     Indication: HYPERTENSION
     Dosage: UNK
     Dates: start: 200905
  4. FUROSEMIDE [Concomitant]
     Indication: HYPERTENSION
     Dosage: UNK
     Dates: start: 200905
  5. METOPROLOL [Concomitant]
     Indication: HYPERTENSION
     Dosage: UNK
     Dates: start: 201009
  6. ASPIRIN [Concomitant]
     Indication: CARDIAC DISORDER
     Dosage: UNK
     Dates: start: 201009
  7. RENAGEL                            /01459901/ [Concomitant]
     Indication: NEPHROPATHY
     Dosage: UNK
     Dates: start: 200804
  8. HECTOROL [Concomitant]
     Indication: NEPHROPATHY
     Dosage: UNK
     Dates: start: 200804
  9. HUMALOG [Concomitant]
     Indication: DIABETES MELLITUS
     Dosage: UNK
     Dates: start: 200812
  10. LANTUS [Concomitant]
     Indication: DIABETES MELLITUS
  11. KAYEXALATE [Concomitant]

REACTIONS (1)
  - Renal failure acute [Recovered/Resolved]
